FAERS Safety Report 7430821-2 (Version None)
Quarter: 2011Q2

REPORT INFORMATION
  Report Type: 
  Country: None (occurrence: None)
  Receive Date: 20110421
  Receipt Date: 20110413
  Transmission Date: 20111010
  Serious: Yes (Hospitalization, Other)
  Sender: FDA-Public Use
  Company Number: CA-US-EMD SERONO, INC.-7039257

PATIENT
  Sex: Male

DRUGS (2)
  1. SAIZEN [Suspect]
     Indication: RENAL FAILURE CHRONIC
     Dates: start: 20110110
  2. SAIZEN [Suspect]
     Indication: RENAL TRANSPLANT

REACTIONS (4)
  - INJECTION SITE PAIN [None]
  - KIDNEY TRANSPLANT REJECTION [None]
  - INJECTION SITE MASS [None]
  - CONVULSION [None]
